FAERS Safety Report 9961097 (Version 1)
Quarter: 2014Q1

REPORT INFORMATION
  Report Type: Spontaneous
  Country: US (occurrence: US)
  Receive Date: 20140305
  Receipt Date: 20140305
  Transmission Date: 20141002
  Serious: No
  Sender: FDA-Public Use
  Company Number: US-ABBVIE-13P-163-1108908-00

PATIENT
  Sex: Male

DRUGS (2)
  1. HUMIRA [Suspect]
     Indication: EXPOSURE VIA BODY FLUID
     Route: 050
  2. HUMIRA [Suspect]
     Indication: FOETAL EXPOSURE DURING PREGNANCY

REACTIONS (6)
  - Paternal drugs affecting foetus [Unknown]
  - Eczema [Unknown]
  - Nasal congestion [Unknown]
  - Eczema [Not Recovered/Not Resolved]
  - Foetal exposure during pregnancy [Unknown]
  - Pyrexia [Unknown]
